FAERS Safety Report 6408689-2 (Version None)
Quarter: 2009Q4

REPORT INFORMATION
  Report Type: 
  Country: None (occurrence: None)
  Receive Date: 20091019
  Receipt Date: 20091008
  Transmission Date: 20100525
  Serious: Yes (Other)
  Sender: FDA-Public Use
  Company Number: 230005J09FRA

PATIENT
  Age: 57 Year
  Sex: Female

DRUGS (5)
  1. REBIF [Suspect]
     Indication: MULTIPLE SCLEROSIS
     Dosage: 22 MCG, 44 MCG
     Dates: start: 20081001
  2. TEGRETOL [Suspect]
     Indication: MIGRAINE
     Dosage: ORAL
     Route: 048
  3. GYDRELLE [ESTRIOL] (ESTRIOL) [Suspect]
     Indication: MENOPAUSE
     Dosage: VAGINAL
     Route: 067
     Dates: start: 20090601
  4. CALDINE (LACIDIPINE) [Concomitant]
  5. TEMERIT [NEBIVOLOL] (NEBIVOLOL) [Concomitant]

REACTIONS (9)
  - ALANINE AMINOTRANSFERASE INCREASED [None]
  - ASPARTATE AMINOTRANSFERASE INCREASED [None]
  - DERMATITIS BULLOUS [None]
  - FATIGUE [None]
  - GAMMA-GLUTAMYLTRANSFERASE INCREASED [None]
  - MULTIPLE SCLEROSIS RELAPSE [None]
  - PAIN IN EXTREMITY [None]
  - PORPHYRIA NON-ACUTE [None]
  - TOXIC SKIN ERUPTION [None]
